FAERS Safety Report 21498465 (Version 1)
Quarter: 2022Q4

REPORT INFORMATION
  Report Type: Spontaneous
  Country: US (occurrence: None)
  Receive Date: 20221021
  Receipt Date: 20221021
  Transmission Date: 20230113
  Serious: No
  Sender: FDA-Public Use
  Company Number: None

PATIENT
  Sex: Female

DRUGS (1)
  1. MAVYRET [Suspect]
     Active Substance: GLECAPREVIR\PIBRENTASVIR
     Indication: Hepatitis C
     Dosage: OTHER QUANTITY : 100MG/40MG;?FREQUENCY : DAILY;?
     Route: 048
     Dates: start: 20220930, end: 202210

REACTIONS (2)
  - Illness [None]
  - Chromaturia [None]
